FAERS Safety Report 18736221 (Version 4)
Quarter: 2021Q2

REPORT INFORMATION
  Report Type: Report from Study
  Country: US (occurrence: US)
  Receive Date: 20210113
  Receipt Date: 20210415
  Transmission Date: 20210717
  Serious: No
  Sender: FDA-Public Use
  Company Number: NVSC2021US005599

PATIENT
  Sex: Male

DRUGS (1)
  1. COSENTYX [Suspect]
     Active Substance: SECUKINUMAB
     Indication: PSORIASIS
     Dosage: 300 MG, QW FOR 5 WEEKS, THEN ONCE Q4W
     Route: 058
     Dates: start: 20190608

REACTIONS (3)
  - Psoriasis [Not Recovered/Not Resolved]
  - Skin lesion [Unknown]
  - Product dose omission issue [Not Recovered/Not Resolved]
